FAERS Safety Report 22353280 (Version 2)
Quarter: 2023Q2

REPORT INFORMATION
  Report Type: Report from Study
  Country: US (occurrence: US)
  Receive Date: 20230523
  Receipt Date: 20230525
  Transmission Date: 20230722
  Serious: No
  Sender: FDA-Public Use
  Company Number: US-002147023-NVSC2023US116996

PATIENT
  Sex: Male

DRUGS (3)
  1. METOPROLOL [Suspect]
     Active Substance: METOPROLOL
     Indication: Psoriasis
     Dosage: UNK
     Route: 065
  2. FLUOCINONIDE [Suspect]
     Active Substance: FLUOCINONIDE
     Indication: Psoriasis
     Dosage: UNK (0.05% TOPICAL SOLUTION)
     Route: 065
  3. BETAMETHASONE [Suspect]
     Active Substance: BETAMETHASONE
     Indication: Psoriasis
     Dosage: UNK
     Route: 065

REACTIONS (5)
  - Androgenetic alopecia [Unknown]
  - Photodermatosis [Unknown]
  - Psoriasis [Unknown]
  - Product use in unapproved indication [Unknown]
  - Drug ineffective [Unknown]
